FAERS Safety Report 6111013-6 (Version None)
Quarter: 2009Q1

REPORT INFORMATION
  Report Type: 
  Country: None (occurrence: None)
  Receive Date: 20090311
  Receipt Date: 20090226
  Transmission Date: 20090719
  Serious: Yes (Other)
  Sender: FDA-Public Use
  Company Number: PHHY2009AE07009

PATIENT
  Sex: Male

DRUGS (5)
  1. DIOVAN [Suspect]
     Indication: HYPERTENSION
     Dosage: UNK
     Route: 048
     Dates: start: 20090222
  2. ROCEPHIN [Concomitant]
  3. BRUFEN [Concomitant]
  4. DOPAMINE HCL [Concomitant]
  5. PERFALGAN [Concomitant]

REACTIONS (4)
  - BLOOD PRESSURE INCREASED [None]
  - HAEMOGLOBIN INCREASED [None]
  - RENAL IMPAIRMENT [None]
  - SEPSIS [None]
